FAERS Safety Report 6700881-2 (Version None)
Quarter: 2010Q2

REPORT INFORMATION
  Report Type: 
  Country: None (occurrence: None)
  Receive Date: 20100428
  Receipt Date: 20100410
  Transmission Date: 20101027
  Serious: Yes (Other)
  Sender: FDA-Public Use
  Company Number: FR-PFIZER INC-2010046283

PATIENT
  Age: 71 Year
  Sex: Female

DRUGS (6)
  1. CADUET [Suspect]
  2. CELESTAMINE TAB [Concomitant]
     Dosage: UNK
  3. COKENZEN [Concomitant]
     Dosage: 16MG/12.5MG
  4. STRONTIUM RANELATE [Concomitant]
     Indication: POLYARTHRITIS
     Dosage: UNK
  5. CALCIDOSE [Concomitant]
     Dosage: UNK
  6. DAFALGAN [Concomitant]
     Indication: PAIN

REACTIONS (5)
  - ARTHRALGIA [None]
  - DYSSTASIA [None]
  - MUSCLE SPASMS [None]
  - MUSCULOSKELETAL STIFFNESS [None]
  - MYALGIA [None]
